FAERS Safety Report 10765830 (Version 1)
Quarter: 2015Q1

REPORT INFORMATION
  Report Type: Spontaneous
  Country: US (occurrence: None)
  Receive Date: 20150204
  Receipt Date: 20150204
  Transmission Date: 20150721
  Serious: Yes (Hospitalization)
  Sender: FDA-Public Use
  Company Number: None

PATIENT
  Age: 81 Year
  Sex: Male
  Weight: 90.2 kg

DRUGS (16)
  1. ASPIRIN. [Suspect]
     Active Substance: ASPIRIN
     Indication: ATRIAL FIBRILLATION
     Route: 048
  2. VASOTEC [Concomitant]
     Active Substance: ENALAPRIL MALEATE
  3. ALDACTONE [Concomitant]
     Active Substance: SPIRONOLACTONE
  4. IMDUR [Concomitant]
     Active Substance: ISOSORBIDE MONONITRATE
  5. NTG [Concomitant]
     Active Substance: NITROGLYCERIN
  6. LIPITOR [Concomitant]
     Active Substance: ATORVASTATIN CALCIUM
  7. NIACIN. [Concomitant]
     Active Substance: NIACIN
  8. PRILOSEC [Concomitant]
     Active Substance: OMEPRAZOLE MAGNESIUM
  9. COUMADIN [Suspect]
     Active Substance: WARFARIN SODIUM
     Route: 048
  10. PROVENTIL [Concomitant]
     Active Substance: ALBUTEROL
  11. COUMADIN [Suspect]
     Active Substance: WARFARIN SODIUM
     Indication: ATRIAL FIBRILLATION
     Dosage: 2.5 MG QTHURS PO
     Route: 048
  12. PROSCAR [Concomitant]
     Active Substance: FINASTERIDE
  13. LASIX [Concomitant]
     Active Substance: FUROSEMIDE
  14. LOPRESSOR [Concomitant]
     Active Substance: METOPROLOL TARTRATE
  15. ASPIRIN. [Suspect]
     Active Substance: ASPIRIN
     Indication: MYOCARDIAL INFARCTION
     Route: 048
  16. ASPIRIN. [Suspect]
     Active Substance: ASPIRIN
     Indication: AORTIC ANEURYSM
     Route: 048

REACTIONS (6)
  - Acute myocardial infarction [None]
  - Ventricular tachycardia [None]
  - Cardiac arrest [None]
  - Post procedural complication [None]
  - Haemoptysis [None]
  - International normalised ratio increased [None]

NARRATIVE: CASE EVENT DATE: 20141110
